FAERS Safety Report 6891248-5 (Version None)
Quarter: 2010Q3

REPORT INFORMATION
  Report Type: 
  Country: None (occurrence: None)
  Receive Date: 20100731
  Receipt Date: 20090709
  Transmission Date: 20110219
  Serious: No
  Sender: FDA-Public Use
  Company Number: US-PFIZER INC-2008075125

PATIENT
  Sex: Female
  Weight: 54.422 kg

DRUGS (4)
  1. LIPITOR [Suspect]
     Indication: BLOOD CHOLESTEROL INCREASED
     Dosage: 40 MG, 1X/DAY
     Dates: start: 20000101, end: 20080815
  2. ACETYLSALICYLIC ACID SRT [Concomitant]
  3. LORATADINE [Concomitant]
     Indication: SEASONAL ALLERGY
  4. CALCIUM [Concomitant]
     Dosage: 1500 MG DAILY

REACTIONS (2)
  - MYALGIA [None]
  - PAIN IN EXTREMITY [None]
